FAERS Safety Report 23729154 (Version 4)
Quarter: 2024Q2

REPORT INFORMATION
  Report Type: Report from Study
  Country: IT (occurrence: IT)
  Receive Date: 20240410
  Receipt Date: 20240614
  Transmission Date: 20240716
  Serious: Yes (Congenital Anomaly, Other)
  Sender: FDA-Public Use
  Company Number: IT-ROCHE-3275721

PATIENT
  Age: 62 Year
  Sex: Female
  Weight: 53 kg

DRUGS (36)
  1. ENHERTU [Suspect]
     Active Substance: FAM-TRASTUZUMAB DERUXTECAN-NXKI
     Indication: HER2 positive breast cancer
     Dosage: 270 MG, ONCE EVERY 3 WK
     Route: 042
     Dates: start: 20221006, end: 20221027
  2. ENHERTU [Suspect]
     Active Substance: FAM-TRASTUZUMAB DERUXTECAN-NXKI
     Dosage: 228 MG, ONCE EVERY 3 WK
     Route: 042
     Dates: start: 20221027, end: 20221117
  3. ENHERTU [Suspect]
     Active Substance: FAM-TRASTUZUMAB DERUXTECAN-NXKI
     Dosage: 163 MG, ONCE EVERY 3 WK
     Route: 042
     Dates: start: 20221213
  4. TRASTUZUMAB [Suspect]
     Active Substance: TRASTUZUMAB
     Indication: HER2 positive breast cancer
     Dosage: 416 MG, ONCE EVERY 3 WK (NOT OTHERWISE
     Route: 042
     Dates: start: 20190104, end: 20190104
  5. TRASTUZUMAB [Suspect]
     Active Substance: TRASTUZUMAB
     Dosage: 6 MG/KG, ONCE EVERY 3 WK
     Route: 042
     Dates: start: 20190125, end: 20220826
  6. PERTUZUMAB [Suspect]
     Active Substance: PERTUZUMAB
     Indication: HER2 positive breast cancer
     Dosage: 840 MG, ONCE EVERY 3 WK
     Route: 042
     Dates: start: 20190104, end: 20190104
  7. PERTUZUMAB [Suspect]
     Active Substance: PERTUZUMAB
     Indication: Breast cancer
     Dosage: 420 MG, ONCE EVERY 3 WK,CUMULATIVE DOSE 28560 MG
     Route: 042
     Dates: start: 20190125, end: 20200826
  8. AROMASIN [Suspect]
     Active Substance: EXEMESTANE
     Indication: HER2 positive breast cancer
     Dosage: 25 MILLIGRAM, QD, MOST RECENT DOSE 26/NOV/2021
     Route: 048
     Dates: start: 20210924
  9. AROMASIN [Suspect]
     Active Substance: EXEMESTANE
     Indication: Breast cancer
  10. TAXOL [Suspect]
     Active Substance: PACLITAXEL
     Indication: HER2 positive breast cancer
     Dosage: 120 MILLIGRAM, QWK, CUMULATIVE DOSE 3000 MG
     Route: 042
     Dates: start: 20190104, end: 20190621
  11. TAXOL [Suspect]
     Active Substance: PACLITAXEL
     Indication: HER2 positive breast cancer
  12. TAXOL [Suspect]
     Active Substance: PACLITAXEL
     Indication: Breast cancer
  13. ARIMIDEX [Suspect]
     Active Substance: ANASTROZOLE
     Indication: HER2 positive breast cancer
     Dosage: 1 MILLIGRAM, QD, MOST RECENT DOSE PRIOR TO THE EVENT: 27/NOV/2021
     Route: 048
     Dates: start: 20190628, end: 20210923
  14. ARIMIDEX [Suspect]
     Active Substance: ANASTROZOLE
     Indication: Hypertension
  15. ARIMIDEX [Suspect]
     Active Substance: ANASTROZOLE
     Indication: HER2 positive breast cancer
  16. ARIMIDEX [Suspect]
     Active Substance: ANASTROZOLE
     Indication: Breast cancer
  17. ZOLEDRONIC ACID [Concomitant]
     Active Substance: ZOLEDRONIC ACID
     Indication: Metastases to bone
     Dosage: 4 MG, ONCE EVERY 3 MO
     Route: 065
  18. ZOLEDRONIC ACID [Concomitant]
     Active Substance: ZOLEDRONIC ACID
     Dosage: 4 MG, ONCE EVERY 1 MO
     Route: 065
  19. PANTOPRAZOLE SODIUM [Concomitant]
     Active Substance: PANTOPRAZOLE SODIUM
     Indication: Prophylaxis
     Dosage: 20 MG, QD
     Route: 065
  20. LAMIVUDINE [Concomitant]
     Active Substance: LAMIVUDINE
     Indication: Product used for unknown indication
     Dosage: 100 MG, QD
     Route: 065
  21. ANASTROZOLE [Concomitant]
     Active Substance: ANASTROZOLE
     Indication: Hypertension
     Dosage: 1 MG
     Route: 065
     Dates: start: 20211125
  22. METHYLPREDNISOLONE [Concomitant]
     Active Substance: METHYLPREDNISOLONE
     Indication: Premedication
     Dosage: 125 MG, ONCE EVERY 3 WK
     Route: 065
     Dates: start: 20200508, end: 20220426
  23. METHYLPREDNISOLONE [Concomitant]
     Active Substance: METHYLPREDNISOLONE
     Indication: Product used for unknown indication
  24. GRANISETRONE [Concomitant]
     Indication: Product used for unknown indication
     Dosage: 1 MG, ONCE EVERY 1 WK
     Route: 065
     Dates: start: 20190104, end: 20190621
  25. METOPROLOL [Concomitant]
     Active Substance: METOPROLOL
     Indication: Hypertension
     Dosage: 25 MG, BID
     Route: 065
     Dates: start: 20200829
  26. CHLORPHENIRAMINE MALEATE [Concomitant]
     Active Substance: CHLORPHENIRAMINE MALEATE
     Indication: Product used for unknown indication
     Dosage: 10 MG, ONCE EVERY 1 WK
     Route: 065
     Dates: start: 20190104, end: 20190621
  27. CHLORPHENIRAMINE MALEATE [Concomitant]
     Active Substance: CHLORPHENIRAMINE MALEATE
     Dosage: 10 MG, ONCE EVERY 3 WK
     Route: 065
     Dates: start: 20190719
  28. METOCLOPRAMIDE [Concomitant]
     Active Substance: METOCLOPRAMIDE
     Indication: Prophylaxis
     Dosage: 10 MILLIGRAM, QD
     Route: 065
     Dates: start: 20221117
  29. LOSARTAN [Concomitant]
     Active Substance: LOSARTAN
     Indication: Product used for unknown indication
     Dosage: 50 MILLIGRAM, QD
     Route: 065
     Dates: start: 20210329
  30. DEXAMETHASONE SODIUM PHOSPHATE [Concomitant]
     Active Substance: DEXAMETHASONE PHOSPHATE\DEXAMETHASONE SODIUM PHOSPHATE
     Indication: Premedication
     Dosage: 10 MILLIGRAM, Q3WK
     Route: 065
     Dates: start: 20191122, end: 20200306
  31. ASPIRIN [Concomitant]
     Active Substance: ASPIRIN
     Indication: Prophylaxis
     Dosage: 100 MILLIGRAM, QD
     Route: 065
     Dates: start: 20211125
  32. AMOXICILLIN\CLAVULANATE POTASSIUM [Concomitant]
     Active Substance: AMOXICILLIN\CLAVULANATE POTASSIUM
     Indication: Influenza
     Dosage: 125 MILLIGRAM, BID
     Route: 065
     Dates: start: 20221130, end: 20221206
  33. NORVASC [Concomitant]
     Active Substance: AMLODIPINE BESYLATE
     Indication: Product used for unknown indication
     Dosage: 5 MG, QD
     Route: 065
     Dates: start: 20190829
  34. MODURETIC 5-50 [Concomitant]
     Active Substance: AMILORIDE HYDROCHLORIDE\HYDROCHLOROTHIAZIDE
     Indication: Product used for unknown indication
     Dosage: 5 MILLIGRAM, QOD
     Route: 065
     Dates: start: 20190829
  35. PREDNISONE [Concomitant]
     Active Substance: PREDNISONE
     Indication: Product used for unknown indication
     Dosage: 5 MILLIGRAM, QD
     Route: 065
     Dates: start: 20190829
  36. ANASTROZOLE [Concomitant]
     Active Substance: ANASTROZOLE
     Indication: Hypertension
     Dosage: 1 MG
     Route: 065
     Dates: start: 20211125

REACTIONS (4)
  - Toxicity to various agents [Recovered/Resolved]
  - Asthenia [Recovered/Resolved]
  - Nausea [Recovered/Resolved]
  - Eastern Cooperative Oncology Group performance status worsened [Not Recovered/Not Resolved]

NARRATIVE: CASE EVENT DATE: 20221027
